FAERS Safety Report 6268512-6 (Version None)
Quarter: 2009Q3

REPORT INFORMATION
  Report Type: 
  Country: None (occurrence: None)
  Receive Date: 20090713
  Receipt Date: 20090713
  Transmission Date: 20100115
  Serious: Yes (Other)
  Sender: FDA-Public Use
  Company Number: None

PATIENT
  Age: 70 Year
  Sex: Male
  Weight: 68.9467 kg

DRUGS (1)
  1. LEVAQUIN [Suspect]
     Indication: BRONCHITIS
     Dosage: ONE TABLET ONCE A DAY PO (2 DAYS OUR OF 7 PRESCRIBE)
     Route: 048
     Dates: start: 20090615, end: 20090617

REACTIONS (9)
  - CONTUSION [None]
  - DRUG INEFFECTIVE [None]
  - GAIT DISTURBANCE [None]
  - INSOMNIA [None]
  - JOINT SWELLING [None]
  - OEDEMA PERIPHERAL [None]
  - SURGERY [None]
  - TENDON INJURY [None]
  - THERAPEUTIC RESPONSE DECREASED [None]
